FAERS Safety Report 6934239-8 (Version None)
Quarter: 2010Q3

REPORT INFORMATION
  Report Type: 
  Country: None (occurrence: None)
  Receive Date: 20100820
  Receipt Date: 20100811
  Transmission Date: 20110219
  Serious: Yes (Hospitalization, Other)
  Sender: FDA-Public Use
  Company Number: US-PFIZER INC-2010101504

PATIENT
  Sex: Male
  Weight: 11 kg

DRUGS (2)
  1. DILANTIN [Suspect]
     Indication: CONVULSION
     Dosage: ONE AND HALF TABLET ONCE DAILY
     Route: 048
     Dates: start: 19870124, end: 19870208
  2. PHENOBARBITAL [Concomitant]
     Indication: CONVULSION
     Dosage: 30 MG, 2X/DAY

REACTIONS (1)
  - STEVENS-JOHNSON SYNDROME [None]
